FAERS Safety Report 6375757-3 (Version None)
Quarter: 2009Q3

REPORT INFORMATION
  Report Type: 
  Country: None (occurrence: None)
  Receive Date: 20090922
  Receipt Date: 20090922
  Transmission Date: 20100115
  Serious: Yes (Hospitalization, Other)
  Sender: FDA-Public Use
  Company Number: None

PATIENT
  Age: 65 Year
  Sex: Male
  Weight: 96.1626 kg

DRUGS (1)
  1. POLYETHYLENE GLYCOL 3350 [Suspect]
     Indication: COLONOSCOPY
     Dosage: 17 GRAMS 7 DOSES IN 2 HOURS PO
     Route: 048
     Dates: start: 20090919, end: 20090919

REACTIONS (5)
  - CHILLS [None]
  - DYSPNOEA [None]
  - HYPOVOLAEMIA [None]
  - NAUSEA [None]
  - TREMOR [None]
